FAERS Safety Report 8762746 (Version 2)
Quarter: 2013Q1

REPORT INFORMATION
  Report Type: Spontaneous
  Country: US (occurrence: US)
  Receive Date: 20120830
  Receipt Date: 20130117
  Transmission Date: 20140127
  Serious: No
  Sender: FDA-Public Use
  Company Number: US-009507513-1208USA009188

PATIENT
  Age: 15 Year
  Sex: Female
  Weight: 63.49 kg

DRUGS (2)
  1. IMPLANON [Suspect]
     Indication: CONTRACEPTION
     Dosage: 1 DF, UNK
     Dates: start: 20120529
  2. ALBUTEROL [Concomitant]

REACTIONS (1)
  - Menorrhagia [Not Recovered/Not Resolved]
